FAERS Safety Report 6698642-6 (Version None)
Quarter: 2010Q2

REPORT INFORMATION
  Report Type: 
  Country: None (occurrence: None)
  Receive Date: 20100427
  Receipt Date: 20100412
  Transmission Date: 20101027
  Serious: Yes (Other)
  Sender: FDA-Public Use
  Company Number: PHHY2010US20397

PATIENT
  Sex: Female
  Weight: 80 kg

DRUGS (5)
  1. AFINITOR [Suspect]
     Indication: RENAL CANCER
     Dosage: 10 MG, QD
     Route: 048
     Dates: start: 20100126, end: 20100312
  2. LIPITOR [Concomitant]
     Indication: BLOOD CHOLESTEROL INCREASED
     Dosage: 10 MG DAILY
     Route: 048
     Dates: start: 20100107
  3. LORTAB [Concomitant]
     Indication: PAIN
     Dosage: 1 TAB EVERY 4 HRS, PRN
     Route: 048
     Dates: start: 20081021
  4. PREVACID [Concomitant]
     Indication: GASTROOESOPHAGEAL REFLUX DISEASE
     Dosage: 300 MG, QD
     Route: 048
     Dates: start: 20090116
  5. AMBIEN [Concomitant]
     Indication: INSOMNIA
     Dosage: 10 MG, PRN
     Dates: start: 20090504

REACTIONS (6)
  - APHTHOUS STOMATITIS [None]
  - COUGH [None]
  - DRY MOUTH [None]
  - DRY THROAT [None]
  - HYPOPHAGIA [None]
  - MUCOSAL INFLAMMATION [None]
